FAERS Safety Report 10286312 (Version 1)
Quarter: 2014Q3

REPORT INFORMATION
  Report Type: Spontaneous
  Country: US (occurrence: None)
  Receive Date: 20140707
  Receipt Date: 20140707
  Transmission Date: 20150326
  Serious: Yes (Hospitalization)
  Sender: FDA-Public Use
  Company Number: None

PATIENT
  Age: 74 Year
  Sex: Male
  Weight: 89 kg

DRUGS (9)
  1. ATENOLOL. [Concomitant]
     Active Substance: ATENOLOL
  2. IRON SUCROSE [Concomitant]
     Active Substance: IRON SUCROSE
  3. NIFEDIPINE. [Concomitant]
     Active Substance: NIFEDIPINE
  4. IBRUTINIB [Suspect]
     Active Substance: IBRUTINIB
     Dosage: 3 PILLS?QD?ORAL
     Route: 048
     Dates: start: 20130405, end: 20140616
  5. ERYTHROPOIETIN [Concomitant]
     Active Substance: ERYTHROPOIETIN
  6. IBRUTINIB [Suspect]
     Active Substance: IBRUTINIB
     Indication: CHRONIC LYMPHOCYTIC LEUKAEMIA RECURRENT
     Dosage: 3 PILLS?QD?ORAL
     Route: 048
     Dates: start: 20130405, end: 20140616
  7. CYANOCOBALAMIN. [Concomitant]
     Active Substance: CYANOCOBALAMIN
  8. SIMVASTATIN. [Concomitant]
     Active Substance: SIMVASTATIN
  9. BUPROPION [Concomitant]
     Active Substance: BUPROPION

REACTIONS (6)
  - Back pain [None]
  - Temporal arteritis [None]
  - Decreased appetite [None]
  - Arthralgia [None]
  - Fatigue [None]
  - Pain of skin [None]

NARRATIVE: CASE EVENT DATE: 20140625
